FAERS Safety Report 21497335 (Version 1)
Quarter: 2022Q4

REPORT INFORMATION
  Report Type: Spontaneous
  Country: US (occurrence: None)
  Receive Date: 20221021
  Receipt Date: 20221021
  Transmission Date: 20230113
  Serious: No
  Sender: FDA-Public Use
  Company Number: None

PATIENT
  Sex: Male

DRUGS (1)
  1. NUWIQ [Suspect]
     Active Substance: ANTIHEMOPHILIC FACTOR, HUMAN RECOMBINANT
     Indication: Factor VIII deficiency
     Dosage: FREQUENCY : AS NEEDED;?INFUSE 500 UNITS{450-550] SLOW IV PUSH DAILY AS NEEDED FOR BLEEDS
     Dates: start: 202208

REACTIONS (1)
  - Head injury [None]

NARRATIVE: CASE EVENT DATE: 20221009
